FAERS Safety Report 13680978 (Version 1)
Quarter: 2017Q2

REPORT INFORMATION
  Report Type: Spontaneous
  Country: GB (occurrence: GB)
  Receive Date: 20170623
  Receipt Date: 20170623
  Transmission Date: 20170830
  Serious: Yes (Life-Threatening, Hospitalization, Other)
  Sender: FDA-Public Use
  Company Number: GB-TORRENT-00015350

PATIENT
  Age: 44 Year
  Sex: Female
  Weight: 44 kg

DRUGS (11)
  1. AMITRIPTYLINE HYDROCHLORIDE. [Suspect]
     Active Substance: AMITRIPTYLINE HYDROCHLORIDE
  2. BOOTS IBUPROFEN [Concomitant]
  3. AMITRIPTYLINE HYDROCHLORIDE. [Suspect]
     Active Substance: AMITRIPTYLINE HYDROCHLORIDE
  4. QUETIAPINE FUMARATE. [Suspect]
     Active Substance: QUETIAPINE FUMARATE
  5. ZOPICLONE [Concomitant]
     Active Substance: ZOPICLONE
  6. DIAZEPAM. [Concomitant]
     Active Substance: DIAZEPAM
  7. DOXYCYCLINE. [Concomitant]
     Active Substance: DOXYCYCLINE
  8. PARACETAMOL [Concomitant]
     Active Substance: ACETAMINOPHEN
  9. MIGRALEVE [Concomitant]
     Active Substance: ACETAMINOPHEN\BUCLIZINE HYDROCHLORIDE\CODEINE
  10. CITALOPRAM HYDROBROMIDE. [Suspect]
     Active Substance: CITALOPRAM HYDROBROMIDE
  11. SUMATRIPTAN SUCCINATE. [Concomitant]
     Active Substance: SUMATRIPTAN SUCCINATE

REACTIONS (21)
  - Dizziness [Not Recovered/Not Resolved]
  - Localised oedema [Recovered/Resolved with Sequelae]
  - Personality change [Unknown]
  - Feeling abnormal [Unknown]
  - Headache [Unknown]
  - Off label use [Unknown]
  - Restlessness [Recovering/Resolving]
  - Withdrawal syndrome [Not Recovered/Not Resolved]
  - Paraesthesia [Unknown]
  - Suicidal ideation [Recovered/Resolved with Sequelae]
  - Oedema peripheral [Recovered/Resolved with Sequelae]
  - Agitation [Not Recovered/Not Resolved]
  - Nausea [Not Recovered/Not Resolved]
  - Oedema [Recovering/Resolving]
  - Restless legs syndrome [Not Recovered/Not Resolved]
  - Suicide attempt [Recovered/Resolved with Sequelae]
  - Anxiety [Recovering/Resolving]
  - Neuralgia [Not Recovered/Not Resolved]
  - Panic reaction [Recovered/Resolved]
  - Intentional self-injury [Recovered/Resolved with Sequelae]
  - Pain [Not Recovered/Not Resolved]

NARRATIVE: CASE EVENT DATE: 2017
